FAERS Safety Report 14975560 (Version 1)
Quarter: 2018Q2

REPORT INFORMATION
  Report Type: Spontaneous
  Country: US (occurrence: US)
  Receive Date: 20180605
  Receipt Date: 20180605
  Transmission Date: 20180711
  Serious: No
  Sender: FDA-Public Use
  Company Number: US-BAUSCH-BL-2018-009303

PATIENT
  Age: 66 Year
  Sex: Female
  Weight: 77.18 kg

DRUGS (3)
  1. ELIDEL [Suspect]
     Active Substance: PIMECROLIMUS
     Indication: PRURITUS
  2. EPSOM SALT [Concomitant]
     Active Substance: MAGNESIUM SULFATE
     Indication: PRODUCT USED FOR UNKNOWN INDICATION
  3. ELIDEL [Suspect]
     Active Substance: PIMECROLIMUS
     Indication: DANDRUFF
     Route: 061
     Dates: start: 20180315, end: 20180317

REACTIONS (5)
  - Dry eye [Unknown]
  - Ocular hyperaemia [Recovered/Resolved]
  - Condition aggravated [Recovered/Resolved]
  - Accidental exposure to product [Unknown]
  - Drug ineffective [Recovered/Resolved]

NARRATIVE: CASE EVENT DATE: 201803
